FAERS Safety Report 13261702 (Version 2)
Quarter: 2017Q1

REPORT INFORMATION
  Report Type: Spontaneous
  Country: PL (occurrence: PL)
  Receive Date: 20170222
  Receipt Date: 20170224
  Transmission Date: 20170428
  Serious: Yes (Other)
  Sender: FDA-Public Use
  Company Number: PHHY2017PL021295

PATIENT
  Age: 46 Year
  Sex: Female

DRUGS (7)
  1. LERCANIDIPINE  SANDOZ [Suspect]
     Active Substance: LERCANIDIPINE HYDROCHLORIDE
     Dosage: 10 MG, UNK
     Route: 065
  2. INDAPAMIDE. [Suspect]
     Active Substance: INDAPAMIDE
     Indication: HYPOTENSION
     Dosage: MORNING
     Route: 065
  3. RAMIPRIL. [Suspect]
     Active Substance: RAMIPRIL
     Indication: HYPOTENSION
     Dosage: 10 MG MORNING
     Route: 065
  4. CLOPIDOGREL [Suspect]
     Active Substance: CLOPIDOGREL BISULFATE
     Indication: PRODUCT USED FOR UNKNOWN INDICATION
     Route: 065
  5. BISOPROLOL [Suspect]
     Active Substance: BISOPROLOL
     Indication: HYPOTENSION
     Dosage: 5 MG, MORNING
     Route: 065
  6. ACETYLSALICYLIC ACID [Suspect]
     Active Substance: ASPIRIN
     Indication: PRODUCT USED FOR UNKNOWN INDICATION
     Route: 065
  7. LERCANIDIPINE  SANDOZ [Suspect]
     Active Substance: LERCANIDIPINE HYDROCHLORIDE
     Indication: HYPOTENSION
     Dosage: 20 MG, UNK
     Route: 065

REACTIONS (5)
  - Systolic dysfunction [Unknown]
  - Hypotension [Recovering/Resolving]
  - Orthostatic hypotension [Unknown]
  - Arterial stenosis [Unknown]
  - Blood pressure increased [Recovering/Resolving]
